FAERS Safety Report 20532051 (Version 1)
Quarter: 2022Q1

REPORT INFORMATION
  Report Type: Spontaneous
  Country: US (occurrence: US)
  Receive Date: 20220301
  Receipt Date: 20220301
  Transmission Date: 20220423
  Serious: No
  Sender: FDA-Public Use
  Company Number: US-AMRYT PHARMACEUTICALS DAC-AEGR005349

PATIENT
  Sex: Female
  Weight: 98.685 kg

DRUGS (1)
  1. MYALEPT [Suspect]
     Active Substance: METRELEPTIN
     Indication: Lipodystrophy acquired
     Dosage: 5 MILLIGRAM (1 ML), QD
     Route: 058

REACTIONS (3)
  - No adverse event [Unknown]
  - Product supply issue [Recovered/Resolved]
  - Therapy interrupted [Recovered/Resolved]
